FAERS Safety Report 4733651-5 (Version None)
Quarter: 2005Q3

REPORT INFORMATION
  Report Type: 
  Country: None (occurrence: None)
  Receive Date: 20050729
  Receipt Date: 20050711
  Transmission Date: 20060218
  Serious: Yes (Disabling, Other)
  Sender: FDA-Public Use
  Company Number: GBS050717858

PATIENT
  Age: 35 Year
  Sex: Female

DRUGS (3)
  1. CYMBALTA [Suspect]
     Indication: DEPRESSION
     Dosage: 70 MG
     Dates: start: 20050605, end: 20050617
  2. METFORMIN [Concomitant]
  3. ESCITALOPRAM [Concomitant]

REACTIONS (7)
  - AMNESIA [None]
  - DISTURBANCE IN ATTENTION [None]
  - DREAMY STATE [None]
  - DRY MOUTH [None]
  - FATIGUE [None]
  - IMPAIRED DRIVING ABILITY [None]
  - NAUSEA [None]
